FAERS Safety Report 5374812-4 (Version None)
Quarter: 2007Q2

REPORT INFORMATION
  Report Type: 
  Country: None (occurrence: None)
  Receive Date: 20070629
  Receipt Date: 20070626
  Transmission Date: 20071010
  Serious: Yes (Hospitalization)
  Sender: FDA-Public Use
  Company Number: A0660283A

PATIENT
  Age: 79 Year
  Sex: Male

DRUGS (9)
  1. LANOXIN [Suspect]
     Indication: DRUG USE FOR UNKNOWN INDICATION
     Route: 065
  2. METOPROLOL SUCCINATE [Suspect]
     Indication: DRUG USE FOR UNKNOWN INDICATION
     Route: 065
  3. STUDY MEDICATION [Concomitant]
     Indication: PULMONARY FIBROSIS
     Route: 048
     Dates: start: 20060817
  4. FUROSEMIDE [Concomitant]
  5. RISPERDAL [Concomitant]
  6. ALTACE [Concomitant]
  7. ELTROXIN [Concomitant]
  8. WARFARIN SODIUM [Concomitant]
  9. NITROGLYCERIN [Concomitant]

REACTIONS (2)
  - ATRIAL FIBRILLATION [None]
  - DIZZINESS [None]
